FAERS Safety Report 8952871 (Version 1)
Quarter: 2012Q4

REPORT INFORMATION
  Report Type: 
  Country: NZ (occurrence: NZ)
  Receive Date: 20121203
  Receipt Date: 20121203
  Transmission Date: 20130627
  Serious: Yes (Other)
  Sender: FDA-Public Use
  Company Number: CHPA2012NZ024552

PATIENT
  Sex: Female

DRUGS (2)
  1. OTRIVIN [Suspect]
     Indication: NASAL CONGESTION
     Dosage: 1 DF, BID
     Route: 045
     Dates: start: 20121119, end: 20121119
  2. OTRIVIN [Suspect]
     Dosage: 1 DF, once
     Route: 045
     Dates: start: 20121120, end: 20121120

REACTIONS (1)
  - Ageusia [Not Recovered/Not Resolved]
